FAERS Safety Report 9272874 (Version 1)
Quarter: 2013Q2

REPORT INFORMATION
  Report Type: Spontaneous
  Country: US (occurrence: US)
  Receive Date: 20130506
  Receipt Date: 20130506
  Transmission Date: 20140414
  Serious: Yes (Other)
  Sender: FDA-Public Use
  Company Number: US-ALEXION-A201200881

PATIENT
  Age: 64 Year
  Sex: Male

DRUGS (12)
  1. SOLIRIS 300MG [Suspect]
     Indication: HAEMOLYTIC URAEMIC SYNDROME
     Dosage: 900 MG, UNK
     Route: 042
     Dates: start: 20120419
  2. SOLIRIS 300MG [Suspect]
     Dosage: 1200 MG, Q2W
     Route: 042
  3. CIPROFLOXACIN HYDROCHLORIDE [Concomitant]
     Dosage: 500 MG, QD
  4. ASPIRIN [Concomitant]
     Dosage: 81 MG, BID
  5. NIFEDICAL XL [Concomitant]
     Dosage: 60 MG, QD
  6. FOLIC ACID [Concomitant]
     Dosage: 1 MG, BID
  7. ATORVASTATIN [Concomitant]
     Dosage: 10 MG, QD, AFTER DINNER
  8. CARVEDILOL [Concomitant]
     Dosage: 12.5 MG, BID
  9. BENAZEPRIL HYDROCHLORIDE [Concomitant]
     Dosage: 20-12.5 BID
  10. RANITIDINE [Concomitant]
     Dosage: 150 MG, BID
  11. CENTRUM SILVER [Concomitant]
     Dosage: UNK, QD
  12. VITAMIN D3 [Concomitant]
     Dosage: 1000 IU, QD

REACTIONS (2)
  - Sciatic nerve injury [Unknown]
  - Back injury [Recovering/Resolving]
